FAERS Safety Report 5275611-4 (Version None)
Quarter: 2007Q1

REPORT INFORMATION
  Report Type: 
  Country: None (occurrence: None)
  Receive Date: 20070326
  Receipt Date: 20070313
  Transmission Date: 20070707
  Serious: Yes (Other)
  Sender: FDA-Public Use
  Company Number: PHEH2007US03101

PATIENT
  Sex: Female

DRUGS (1)
  1. LOTREL [Suspect]
     Dosage: 5/10 MG, UNK
     Route: 048
     Dates: start: 20020101

REACTIONS (1)
  - CARDIAC VALVE DISEASE [None]
